FAERS Safety Report 10025310 (Version 1)
Quarter: 2014Q1

REPORT INFORMATION
  Report Type: Spontaneous
  Country: GB (occurrence: GB)
  Receive Date: 20140320
  Receipt Date: 20140320
  Transmission Date: 20141002
  Serious: Yes (Disabling)
  Sender: FDA-Public Use
  Company Number: GB-TEVA-468671ISR

PATIENT
  Age: 60 Year
  Sex: Male
  Weight: 90 kg

DRUGS (1)
  1. AMITRIPTYLINE [Suspect]
     Indication: BLADDER IRRITATION
     Route: 048
     Dates: start: 20131001

REACTIONS (1)
  - Tinnitus [Not Recovered/Not Resolved]
